FAERS Safety Report 8214221-3 (Version None)
Quarter: 2012Q1

REPORT INFORMATION
  Report Type: 
  Country: None (occurrence: None)
  Receive Date: 20120316
  Receipt Date: 20120228
  Transmission Date: 20120608
  Serious: No
  Sender: FDA-Public Use
  Company Number: IT-JNJFOC-20120300322

PATIENT

DRUGS (3)
  1. INFLIXIMAB, RECOMBINANT [Suspect]
     Indication: BEHCET'S SYNDROME
     Route: 042
  2. INFLIXIMAB, RECOMBINANT [Suspect]
     Indication: UVEITIS
     Route: 042
  3. PREDNISONE TAB [Concomitant]
     Indication: PRODUCT USED FOR UNKNOWN INDICATION

REACTIONS (5)
  - UPPER RESPIRATORY TRACT INFECTION [None]
  - HEPATIC ENZYME INCREASED [None]
  - URINARY TRACT INFECTION [None]
  - INFUSION RELATED REACTION [None]
  - ANTINUCLEAR ANTIBODY POSITIVE [None]
